FAERS Safety Report 24685277 (Version 1)
Quarter: 2024Q4

REPORT INFORMATION
  Report Type: Spontaneous
  Country: US (occurrence: None)
  Receive Date: 20241127
  Receipt Date: 20241127
  Transmission Date: 20250115
  Serious: Yes (Hospitalization)
  Sender: Public
  Company Number: None

PATIENT
  Sex: Male

DRUGS (1)
  1. CAPECITABINE [Suspect]
     Active Substance: CAPECITABINE
     Indication: Colon cancer
     Dosage: OTHER FREQUENCY : TWICE DAILY, DAYS 1 TO 14 OF CHEM CYCLE;?TWICE DAILY ON DAYS 1 TO14 OF CHEMOTHERAP
     Route: 048
     Dates: start: 202408

REACTIONS (3)
  - Urinary tract infection [None]
  - Fall [None]
  - Paralysis [None]
